FAERS Safety Report 20062392 (Version 1)
Quarter: 2021Q4

REPORT INFORMATION
  Report Type: Spontaneous
  Country: US (occurrence: None)
  Receive Date: 20211112
  Receipt Date: 20211112
  Transmission Date: 20220304
  Serious: Yes (Hospitalization, Other)
  Sender: FDA-Public Use
  Company Number: US-ROCHE-2953458

PATIENT
  Age: 73 Year
  Sex: Female

DRUGS (6)
  1. LUCENTIS [Suspect]
     Active Substance: RANIBIZUMAB
     Indication: Neovascular age-related macular degeneration
     Dosage: SHOT IN BOTH EYES MONTHLY ONGOING : YES
     Route: 050
     Dates: start: 201809
  2. COVID-19 VACCINE NOS [Concomitant]
     Active Substance: COVID-19 VACCINE NOS
     Dosage: 3 DOSES
     Dates: start: 20210121
  3. COVID-19 VACCINE NOS [Concomitant]
     Active Substance: COVID-19 VACCINE NOS
     Dates: start: 20210221
  4. COVID-19 VACCINE NOS [Concomitant]
     Active Substance: COVID-19 VACCINE NOS
     Dates: start: 20210921
  5. ASPIRIN [Concomitant]
     Active Substance: ASPIRIN
     Dosage: ONGOING : YES
     Route: 048
  6. VITAMINS NOS [Concomitant]
     Active Substance: VITAMINS
     Dosage: ONGOING : YES
     Route: 048

REACTIONS (11)
  - Haemorrhage [Unknown]
  - Cerebrovascular accident [Unknown]
  - Atrial fibrillation [Unknown]
  - Mitral valve incompetence [Unknown]
  - Intracardiac thrombus [Unknown]
  - Ulcer haemorrhage [Unknown]
  - Neovascular age-related macular degeneration [Unknown]
  - Haemoglobin decreased [Unknown]
  - Malaise [Unknown]
  - Weight decreased [Unknown]
  - Muscular weakness [Not Recovered/Not Resolved]

NARRATIVE: CASE EVENT DATE: 20181101
